FAERS Safety Report 17359062 (Version 4)
Quarter: 2020Q1

REPORT INFORMATION
  Report Type: Spontaneous
  Country: JP (occurrence: JP)
  Receive Date: 20200202
  Receipt Date: 20200310
  Transmission Date: 20200409
  Serious: Yes (Hospitalization, Other)
  Sender: FDA-Public Use
  Company Number: JP-BEH-2020112424

PATIENT
  Age: 68 Year
  Sex: Male

DRUGS (9)
  1. MUCOSAL [AMBROXOL HYDROCHLORIDE] [Concomitant]
     Route: 065
  2. MAGMITT [Concomitant]
     Active Substance: MAGNESIUM OXIDE
     Route: 065
  3. HIRUDOID [Concomitant]
     Active Substance: GLYCOSAMINOGLYCANS
     Dosage: EXTERNAL MOISTURISER
     Route: 065
  4. HIZENTRA [Suspect]
     Active Substance: HUMAN IMMUNOGLOBULIN G
     Indication: PRIMARY IMMUNODEFICIENCY SYNDROME
     Dosage: 4 GRAM, QW
     Route: 065
     Dates: start: 201712
  5. HIZENTRA [Suspect]
     Active Substance: HUMAN IMMUNOGLOBULIN G
     Dosage: 4 GRAM, QW
     Route: 065
     Dates: start: 201912
  6. DIART [Concomitant]
     Active Substance: AZOSEMIDE
     Dosage: 15 MILLIGRAM, QD
     Route: 065
  7. ULTIBRO BREEZHALER [Concomitant]
     Active Substance: GLYCOPYRRONIUM\INDACATEROL
     Dosage: INHALATION
     Route: 065
  8. L-CARBOCYSTEINE [Concomitant]
     Active Substance: CARBOCYSTEINE
     Route: 048
  9. ERYTHROCIN [ERYTHROMYCIN STEARATE] [Concomitant]
     Route: 048

REACTIONS (2)
  - Physical deconditioning [Recovering/Resolving]
  - Pneumonia [Recovering/Resolving]

NARRATIVE: CASE EVENT DATE: 201912
